FAERS Safety Report 6486373-7 (Version None)
Quarter: 2009Q4

REPORT INFORMATION
  Report Type: 
  Country: None (occurrence: None)
  Receive Date: 20091210
  Receipt Date: 20091130
  Transmission Date: 20100525
  Serious: Yes (Death, Hospitalization)
  Sender: FDA-Public Use
  Company Number: US-BIOGENIDEC-2009BI009478

PATIENT
  Sex: Female

DRUGS (1)
  1. TYSABRI [Suspect]
     Indication: MULTIPLE SCLEROSIS
     Route: 042
     Dates: start: 20081203, end: 20081231

REACTIONS (15)
  - AGITATION [None]
  - ASTHENIA [None]
  - DYSPNOEA [None]
  - GINGIVAL RECESSION [None]
  - HYPERTENSIVE ENCEPHALOPATHY [None]
  - JOINT STIFFNESS [None]
  - MALAISE [None]
  - MULTIPLE SCLEROSIS RELAPSE [None]
  - MUSCULAR WEAKNESS [None]
  - MUSCULOSKELETAL DISORDER [None]
  - MYELITIS TRANSVERSE [None]
  - PAIN IN EXTREMITY [None]
  - RESPIRATORY DISORDER [None]
  - RESPIRATORY FAILURE [None]
  - TOOTH LOSS [None]
